FAERS Safety Report 8486559-6 (Version None)
Quarter: 2012Q3

REPORT INFORMATION
  Report Type: 
  Country: None (occurrence: None)
  Receive Date: 20120703
  Receipt Date: 20120625
  Transmission Date: 20120928
  Serious: Yes (Hospitalization)
  Sender: FDA-Public Use
  Company Number: JP-FRI-1000031039

PATIENT
  Sex: Female

DRUGS (14)
  1. AMOBAN [Suspect]
     Indication: INSOMNIA
     Dosage: 10 MG
     Route: 048
     Dates: start: 20120401, end: 20120516
  2. HALCION [Concomitant]
     Dosage: 10 MG
     Route: 048
  3. PREDNISOLONE [Concomitant]
     Dosage: 10 MG
     Route: 048
  4. LIPITOR [Concomitant]
     Dosage: 5 MG
     Route: 048
     Dates: end: 20120516
  5. MINOCYCLINE HYDROCHLORIDE [Concomitant]
     Dosage: 100 MG
     Route: 048
     Dates: end: 20120516
  6. EPADEL [Concomitant]
     Dosage: 1800 MG
     Route: 048
  7. MUCOSTA [Concomitant]
     Dosage: 300 MG
     Route: 048
  8. NICOTINAMIDE [Concomitant]
     Dosage: 2700 MG
     Dates: end: 20120516
  9. ARICEPT [Concomitant]
     Dosage: 5 MG
     Route: 048
  10. ALFAROL [Concomitant]
     Dosage: 1 MCG
     Route: 048
  11. RISEDRONATE SODIUM [Concomitant]
     Dosage: 2.5 MG
     Route: 048
  12. MEMANTINE HCL [Suspect]
     Indication: DEMENTIA ALZHEIMER'S TYPE
     Dosage: 10 MG
     Route: 048
     Dates: start: 20120401, end: 20120516
  13. FLUVOXAMINE MALEATE [Concomitant]
     Dosage: 50 G
     Route: 048
  14. RABEPRAZOLE SODIUM [Concomitant]
     Dosage: 10 MG

REACTIONS (1)
  - GRANULOCYTOPENIA [None]
